FAERS Safety Report 7735392-9 (Version None)
Quarter: 2011Q3

REPORT INFORMATION
  Report Type: 
  Country: None (occurrence: None)
  Receive Date: 20110907
  Receipt Date: 20110902
  Transmission Date: 20111222
  Serious: Yes (Death)
  Sender: FDA-Public Use
  Company Number: GB-PFIZER INC-2011126841

PATIENT
  Sex: Female

DRUGS (2)
  1. MISOPROSTOL [Suspect]
     Indication: ABORTION INDUCED
     Dosage: UNK
     Route: 064
     Dates: start: 20081223
  2. MIFEPRISTONE (MIFEPREX) [Suspect]
     Indication: ABORTION INDUCED
     Dosage: 200 MG, UNK
     Route: 064
     Dates: start: 20081223

REACTIONS (2)
  - MATERNAL EXPOSURE DURING PREGNANCY [None]
  - SUDDEN INFANT DEATH SYNDROME [None]
